FAERS Safety Report 18880552 (Version 1)
Quarter: 2021Q1

REPORT INFORMATION
  Report Type: Spontaneous
  Country: US (occurrence: US)
  Receive Date: 20210211
  Receipt Date: 20210211
  Transmission Date: 20210420
  Serious: Yes (Hospitalization, Other)
  Sender: FDA-Public Use
  Company Number: US-GLAXOSMITHKLINE-USCH2021004620

PATIENT
  Sex: Female

DRUGS (1)
  1. VOLTAREN [Suspect]
     Active Substance: DICLOFENAC SODIUM
     Indication: PAIN
     Dosage: UNK
     Dates: start: 20190228

REACTIONS (6)
  - Coronavirus test positive [Unknown]
  - Coronavirus infection [Unknown]
  - Incorrect product administration duration [Unknown]
  - Thrombosis [Unknown]
  - Off label use [Unknown]
  - Product use issue [Unknown]
